FAERS Safety Report 9036417 (Version 2)
Quarter: 2013Q1

REPORT INFORMATION
  Report Type: Spontaneous
  Country: IT (occurrence: None)
  Receive Date: 20130114
  Receipt Date: 20130128
  Transmission Date: 20140127
  Serious: Yes (Other)
  Sender: FDA-Public Use
  Company Number: KAD201301-000036

PATIENT
  Age: 42 Year
  Sex: Male

DRUGS (5)
  1. RIBAVIRIN (RIBAVIRIN) [Suspect]
     Indication: HEPATITIS C
     Dates: start: 2002
  2. PEGINTERFERON ALFA-2A [Suspect]
     Indication: HEPATITIS C
     Dates: start: 2004
  3. INSULIN [Concomitant]
  4. TACROLIMUS [Concomitant]
  5. MYCOPHENOLATE [Concomitant]

REACTIONS (10)
  - Porphyria non-acute [None]
  - Haemolysis [None]
  - Iron metabolism disorder [None]
  - Serum ferritin increased [None]
  - Interleukin level increased [None]
  - Alpha tumour necrosis factor increased [None]
  - Hepatitis C [None]
  - Hepatic function abnormal [None]
  - Liver transplant [None]
  - Anaemia [None]
